FAERS Safety Report 20367748 (Version 2)
Quarter: 2022Q4

REPORT INFORMATION
  Report Type: Spontaneous
  Country: US (occurrence: US)
  Receive Date: 20220124
  Receipt Date: 20221107
  Transmission Date: 20230113
  Serious: Yes (Other)
  Sender: FDA-Public Use
  Company Number: US-GILEAD-2022-0566122

PATIENT
  Age: 43 Year
  Sex: Female
  Weight: 67.574 kg

DRUGS (32)
  1. STRIBILD [Suspect]
     Active Substance: COBICISTAT\ELVITEGRAVIR\EMTRICITABINE\TENOFOVIR DISOPROXIL FUMARATE
     Indication: HIV infection
     Dosage: UNK
     Route: 048
     Dates: start: 2005
  2. STRIBILD [Suspect]
     Active Substance: COBICISTAT\ELVITEGRAVIR\EMTRICITABINE\TENOFOVIR DISOPROXIL FUMARATE
     Dosage: UNK
     Route: 048
     Dates: start: 201211, end: 201602
  3. TRUVADA [Suspect]
     Active Substance: EMTRICITABINE\TENOFOVIR DISOPROXIL FUMARATE
     Indication: HIV infection
     Dosage: UNK
     Route: 048
     Dates: start: 200509, end: 2010
  4. ATRIPLA [Suspect]
     Active Substance: EFAVIRENZ\EMTRICITABINE\TENOFOVIR DISOPROXIL FUMARATE
     Indication: HIV infection
     Dosage: UNK
     Route: 065
     Dates: start: 200703, end: 200706
  5. GENVOYA [Concomitant]
     Active Substance: COBICISTAT\ELVITEGRAVIR\EMTRICITABINE\TENOFOVIR ALAFENAMIDE FUMARATE
  6. TRIUMEQ [Concomitant]
     Active Substance: ABACAVIR SULFATE\DOLUTEGRAVIR SODIUM\LAMIVUDINE
  7. ALENDRONATE [Concomitant]
     Active Substance: ALENDRONATE SODIUM
  8. ATORVASTATIN [Concomitant]
     Active Substance: ATORVASTATIN
  9. CHERATUSSIN AC [Concomitant]
     Active Substance: CODEINE PHOSPHATE\GUAIFENESIN
  10. COMBIVENT [Concomitant]
     Active Substance: ALBUTEROL SULFATE\IPRATROPIUM BROMIDE
  11. ALBUTEROL [Concomitant]
     Active Substance: ALBUTEROL
  12. CYCLOBENZAPRINE [Concomitant]
     Active Substance: CYCLOBENZAPRINE
  13. DOXEPIN [Concomitant]
     Active Substance: DOXEPIN
  14. ESCITALOPRAM [Concomitant]
     Active Substance: ESCITALOPRAM OXALATE
  15. EZETIMIBE [Concomitant]
     Active Substance: EZETIMIBE
  16. FENOFIBRATE [Concomitant]
     Active Substance: FENOFIBRATE
  17. FLOVENT HFA [Concomitant]
     Active Substance: FLUTICASONE PROPIONATE
  18. FLUCONAZOLE [Concomitant]
     Active Substance: FLUCONAZOLE
  19. INCRUSE ELLIPTA [Concomitant]
     Active Substance: UMECLIDINIUM BROMIDE
  20. LIDODERM [Concomitant]
     Active Substance: LIDOCAINE
  21. MEGESTROL [Concomitant]
     Active Substance: MEGESTROL
  22. MORPHINE [Concomitant]
     Active Substance: MORPHINE
  23. ONDANSETRON [Concomitant]
     Active Substance: ONDANSETRON
  24. OXYCODONE [Concomitant]
     Active Substance: OXYCODONE
  25. APAP [Concomitant]
     Active Substance: ACETAMINOPHEN
  26. PANTOPRAZOLE [Concomitant]
     Active Substance: PANTOPRAZOLE
  27. PROAIR HFA [Concomitant]
     Active Substance: ALBUTEROL SULFATE
  28. QUETIAPINE [Concomitant]
     Active Substance: QUETIAPINE
  29. ROSUVASTATIN [Concomitant]
     Active Substance: ROSUVASTATIN
  30. SYMBICORT [Concomitant]
     Active Substance: BUDESONIDE\FORMOTEROL FUMARATE DIHYDRATE
  31. TRAZODONE [Concomitant]
     Active Substance: TRAZODONE HYDROCHLORIDE
  32. TIZANIDINE HYDROCHLORIDE [Concomitant]
     Active Substance: TIZANIDINE HYDROCHLORIDE

REACTIONS (15)
  - Osteoporosis [Unknown]
  - Bone demineralisation [Unknown]
  - Pain [Not Recovered/Not Resolved]
  - Emotional distress [Not Recovered/Not Resolved]
  - Anxiety [Not Recovered/Not Resolved]
  - Anhedonia [Not Recovered/Not Resolved]
  - Osteopenia [Not Recovered/Not Resolved]
  - Skeletal injury [Unknown]
  - Spinal pain [Not Recovered/Not Resolved]
  - Pain in extremity [Not Recovered/Not Resolved]
  - Body height decreased [Unknown]
  - Bone loss [Unknown]
  - Gait disturbance [Not Recovered/Not Resolved]
  - Back pain [Not Recovered/Not Resolved]
  - Depression [Not Recovered/Not Resolved]

NARRATIVE: CASE EVENT DATE: 20170701
